FAERS Safety Report 20639819 (Version 1)
Quarter: 2022Q1

REPORT INFORMATION
  Report Type: Spontaneous
  Country: US (occurrence: US)
  Receive Date: 20220326
  Receipt Date: 20220326
  Transmission Date: 20220423
  Serious: No
  Sender: FDA-Public Use
  Company Number: US-SA-SAC20220321001465

PATIENT
  Age: 66 Year
  Sex: Female

DRUGS (7)
  1. KEVZARA [Suspect]
     Active Substance: SARILUMAB
     Indication: Rheumatoid arthritis
     Dosage: 200 MG, QOW
     Route: 058
  2. FOLIC ACID [Concomitant]
     Active Substance: FOLIC ACID
  3. MAGNESIUM OXIDE [Concomitant]
     Active Substance: MAGNESIUM OXIDE
  4. VITAMIN B COMPLEX [Concomitant]
     Active Substance: CYANOCOBALAMIN\DEXPANTHENOL\NIACINAMIDE\PYRIDOXINE HYDROCHLORIDE\RIBOFLAVIN 5^-PHOSPHATE SODIUM\THIA
  5. CYANOCOBALAMIN [Concomitant]
     Active Substance: CYANOCOBALAMIN
  6. VITAMIN D3 [Concomitant]
     Active Substance: CHOLECALCIFEROL
  7. ZINC [Concomitant]
     Active Substance: ZINC

REACTIONS (1)
  - Illness [Unknown]

NARRATIVE: CASE EVENT DATE: 20220101
